FAERS Safety Report 7634664 (Version 10)
Quarter: 2013Q1

REPORT INFORMATION
  Report Type: Report from Study
  Country: DE (occurrence: DE)
  Receive Date: 20101020
  Receipt Date: 20130228
  Transmission Date: 20140127
  Serious: Yes (Death, Hospitalization, Other)
  Sender: FDA-Public Use
  Company Number: PHHY2010DE66814

PATIENT
  Age: 66 Year
  Sex: Male
  Weight: 74 kg

DRUGS (2)
  1. AMN107 [Suspect]
     Indication: CHRONIC MYELOID LEUKAEMIA
     Dosage: 800 MG, DAILY
     Route: 048
     Dates: start: 20100809
  2. RAMIPRIL [Concomitant]
     Dates: start: 200201

REACTIONS (16)
  - Pleural effusion [Not Recovered/Not Resolved]
  - Renal impairment [Recovered/Resolved]
  - Hyperkalaemia [Recovered/Resolved]
  - Cough [Not Recovered/Not Resolved]
  - Hypotension [Unknown]
  - Vascular rupture [Recovered/Resolved]
  - Somnolence [Unknown]
  - Peritonitis bacterial [Unknown]
  - Bronchitis [Recovered/Resolved]
  - Renal failure acute [Fatal]
  - Ascites [Fatal]
  - Hepatic cirrhosis [Unknown]
  - Acute myocardial infarction [Recovered/Resolved]
  - Dyspnoea [Not Recovered/Not Resolved]
  - Pneumonia [Not Recovered/Not Resolved]
  - Cardiac failure [Recovered/Resolved]
